FAERS Safety Report 13088279 (Version 1)
Quarter: 2017Q1

REPORT INFORMATION
  Report Type: Spontaneous
  Country: US (occurrence: US)
  Receive Date: 20170104
  Receipt Date: 20170104
  Transmission Date: 20170428
  Serious: Yes (Hospitalization)
  Sender: FDA-Public Use
  Company Number: None

PATIENT
  Age: 28 Year
  Sex: Male
  Weight: 78 kg

DRUGS (1)
  1. BACTRIM [Suspect]
     Active Substance: SULFAMETHOXAZOLE\TRIMETHOPRIM

REACTIONS (9)
  - Pyrexia [None]
  - Rash maculo-papular [None]
  - Vomiting [None]
  - Pulmonary eosinophilia [None]
  - Pain in extremity [None]
  - Nausea [None]
  - Arthralgia [None]
  - Respiratory distress [None]
  - Pleural effusion [None]

NARRATIVE: CASE EVENT DATE: 20161221
